FAERS Safety Report 15880826 (Version 2)
Quarter: 2019Q2

REPORT INFORMATION
  Report Type: Spontaneous
  Country: US (occurrence: US)
  Receive Date: 20190128
  Receipt Date: 20190405
  Transmission Date: 20190711
  Serious: Yes (Other)
  Sender: FDA-Public Use
  Company Number: US-NOVOPROD-643205

PATIENT
  Age: 55 Year
  Sex: Female

DRUGS (5)
  1. LEVEMIR [Suspect]
     Active Substance: INSULIN DETEMIR
     Dosage: 70 IU, QD
     Route: 058
     Dates: start: 201807
  2. LEVEMIR [Suspect]
     Active Substance: INSULIN DETEMIR
     Dosage: 70 IU, QD
     Route: 058
     Dates: start: 201807
  3. LEVEMIR [Suspect]
     Active Substance: INSULIN DETEMIR
     Dosage: 70 IU, QD
     Route: 058
     Dates: start: 201807
  4. LEVEMIR [Suspect]
     Active Substance: INSULIN DETEMIR
     Dosage: 70 IU, QD
     Route: 058
     Dates: start: 201807
  5. LEVEMIR [Suspect]
     Active Substance: INSULIN DETEMIR
     Indication: TYPE 2 DIABETES MELLITUS
     Dosage: 70 IU, QD
     Route: 058
     Dates: start: 201807

REACTIONS (3)
  - Hypoglycaemia [Recovering/Resolving]
  - Weight increased [Not Recovered/Not Resolved]
  - Cataract [Not Recovered/Not Resolved]

NARRATIVE: CASE EVENT DATE: 2018
